FAERS Safety Report 11386907 (Version 1)
Quarter: 2015Q3

REPORT INFORMATION
  Report Type: Spontaneous
  Country: US (occurrence: None)
  Receive Date: 20150814
  Receipt Date: 20150814
  Transmission Date: 20151125
  Serious: Yes (Hospitalization)
  Sender: FDA-Public Use
  Company Number: None

PATIENT
  Age: 88 Year
  Sex: Female
  Weight: 65.1 kg

DRUGS (12)
  1. VIT A [Concomitant]
  2. PANTOPRAZOLE [Concomitant]
     Active Substance: PANTOPRAZOLE SODIUM
  3. LATANOPROST. [Concomitant]
     Active Substance: LATANOPROST
  4. DIGOXIN. [Concomitant]
     Active Substance: DIGOXIN
  5. SIMVASTATIN. [Concomitant]
     Active Substance: SIMVASTATIN
  6. VITAMIN D [Concomitant]
     Active Substance: CHOLECALCIFEROL
  7. PIPERACILLIN AND TAZOBACTAM [Concomitant]
     Active Substance: PIPERACILLIN SODIUM\TAZOBACTAM SODIUM
  8. LOVENOX [Concomitant]
     Active Substance: ENOXAPARIN SODIUM
  9. C [Concomitant]
  10. FENTANYL. [Suspect]
     Active Substance: FENTANYL
     Indication: SURGERY
     Dosage: RECENT
     Route: 042
  11. SOTAL [Concomitant]
  12. E [Concomitant]

REACTIONS (3)
  - Unresponsive to stimuli [None]
  - Dyspnoea [None]
  - Oxygen saturation decreased [None]

NARRATIVE: CASE EVENT DATE: 20150217
